FAERS Safety Report 18085176 (Version 2)
Quarter: 2020Q3

REPORT INFORMATION
  Report Type: Spontaneous
  Country: GB (occurrence: GB)
  Receive Date: 20200729
  Receipt Date: 20200825
  Transmission Date: 20201103
  Serious: Yes (Other)
  Sender: FDA-Public Use
  Company Number: NVSC2020GB210790

PATIENT
  Age: 38 Year
  Sex: Male

DRUGS (1)
  1. ATORVASTATIN [Suspect]
     Active Substance: ATORVASTATIN
     Indication: BLOOD CHOLESTEROL ABNORMAL
     Dosage: 40 MG, QD (STRENGTH 40 MG AND 20 MG(BATCH NUMBER:XJT26, EXPIRY DATE:MAR?2023))
     Route: 048

REACTIONS (6)
  - Product odour abnormal [Unknown]
  - Vomiting [Unknown]
  - Illness [Not Recovered/Not Resolved]
  - Product storage error [Unknown]
  - Headache [Unknown]
  - Diarrhoea [Not Recovered/Not Resolved]
